FAERS Safety Report 17224877 (Version 3)
Quarter: 2020Q1

REPORT INFORMATION
  Report Type: Report from Study
  Country: None (occurrence: IT)
  Receive Date: 20200102
  Receipt Date: 20200123
  Transmission Date: 20200409
  Serious: Yes (Death, Hospitalization, Other)
  Sender: FDA-Public Use
  Company Number: IT-ABBVIE-20K-083-3216249-00

PATIENT
  Age: 87 Year
  Sex: Male

DRUGS (2)
  1. DUODOPA [Suspect]
     Active Substance: CARBIDOPA\LEVODOPA
     Dosage: STRENGTH (CMP): 20 MG/ML 5 MG/ML
     Route: 050
     Dates: start: 20200106
  2. DUODOPA [Suspect]
     Active Substance: CARBIDOPA\LEVODOPA
     Indication: PARKINSON^S DISEASE
     Dosage: MD: 3,7 PLUS 3?CR: 0,8?ED: 2,5
     Route: 050
     Dates: start: 20180228, end: 20191229

REACTIONS (3)
  - General physical health deterioration [Fatal]
  - Intestinal obstruction [Unknown]
  - Pneumonia [Fatal]

NARRATIVE: CASE EVENT DATE: 201912
